FAERS Safety Report 17652451 (Version 1)
Quarter: 2020Q2

REPORT INFORMATION
  Report Type: Other
  Country: US (occurrence: US)
  Receive Date: 20200409
  Receipt Date: 20200409
  Transmission Date: 20200713
  Serious: Yes (Hospitalization, Other)
  Sender: FDA-Public Use
  Company Number: US-ACI HEALTHCARE LIMITED-2082581

PATIENT
  Age: 75 Year
  Sex: Male

DRUGS (3)
  1. OPIOIDS [Suspect]
     Active Substance: UNSPECIFIED INGREDIENT
     Route: 048
  2. CEPHALEXIN. [Concomitant]
     Active Substance: CEPHALEXIN
     Route: 065
  3. GABAPENTIN. [Suspect]
     Active Substance: GABAPENTIN
     Indication: PRODUCT USED FOR UNKNOWN INDICATION
     Route: 065

REACTIONS (9)
  - Blood creatine increased [Recovering/Resolving]
  - Hypotension [Unknown]
  - Lethargy [Unknown]
  - Withdrawal syndrome [Unknown]
  - Hallucination, visual [Unknown]
  - Delirium [Recovered/Resolved]
  - Cognitive disorder [Unknown]
  - Toxicity to various agents [Unknown]
  - Drug dose titration not performed [Unknown]
